FAERS Safety Report 6764344-0 (Version None)
Quarter: 2010Q2

REPORT INFORMATION
  Report Type: 
  Country: None (occurrence: None)
  Receive Date: 20100610
  Receipt Date: 20100602
  Transmission Date: 20101027
  Serious: Yes (Other)
  Sender: FDA-Public Use
  Company Number: JP-PFIZER INC-2010069537

PATIENT
  Age: 9 Year
  Sex: Female

DRUGS (3)
  1. SOLU-MEDROL [Suspect]
     Indication: GLOMERULONEPHRITIS RAPIDLY PROGRESSIVE
     Dosage: 30 MG/KG, UNK
     Route: 042
     Dates: start: 20060521
  2. PREDNISOLONE [Concomitant]
     Indication: GLOMERULONEPHRITIS RAPIDLY PROGRESSIVE
     Dosage: 25 MG, UNK
     Route: 048
  3. MIZORIBINE [Concomitant]
     Indication: GLOMERULONEPHRITIS RAPIDLY PROGRESSIVE
     Dosage: UNK
     Route: 048

REACTIONS (5)
  - CONVULSION [None]
  - DUODENAL PERFORATION [None]
  - PANCREATITIS ACUTE [None]
  - PERITONITIS [None]
  - REVERSIBLE POSTERIOR LEUKOENCEPHALOPATHY SYNDROME [None]
